FAERS Safety Report 20233024 (Version 1)
Quarter: 2021Q4

REPORT INFORMATION
  Report Type: Spontaneous
  Country: CN (occurrence: CN)
  Receive Date: 20211227
  Receipt Date: 20211227
  Transmission Date: 20220303
  Serious: Yes (Other)
  Sender: FDA-Public Use
  Company Number: CN-BAXTER-2021BAX041746

PATIENT
  Age: 40 Year
  Sex: Male
  Weight: 83 kg

DRUGS (6)
  1. IFOSFAMIDE [Suspect]
     Active Substance: IFOSFAMIDE
     Indication: Chest wall tumour
     Dosage: SIXTH CYCLE OF VAC/IE (0.9% NS INJECTION 500ML + HOLOXAN INJECTION 4G INTRAVENOUS DRIP QD)
     Route: 041
     Dates: start: 20211209, end: 20211212
  2. SODIUM CHLORIDE [Suspect]
     Active Substance: SODIUM CHLORIDE
     Indication: Medication dilution
     Dosage: DILUTED WITH HOLOXAN 4 GRAMS
     Route: 041
     Dates: start: 20211209, end: 20211212
  3. SODIUM CHLORIDE [Suspect]
     Active Substance: SODIUM CHLORIDE
     Dosage: DILUTED WITH ETOPOSIDE 60 MG
     Route: 041
     Dates: start: 20211209, end: 20211212
  4. SODIUM CHLORIDE [Suspect]
     Active Substance: SODIUM CHLORIDE
     Dosage: DILUTED WITH ETOPOSIDE 120 MG
     Route: 041
     Dates: start: 20211209, end: 20211212
  5. ETOPOSIDE [Suspect]
     Active Substance: ETOPOSIDE
     Indication: Chest wall tumour
     Dosage: 6TH CYCLE, 0.9% NS INJECTION 500ML + ETOPOSIDE INJECTION 120MG INTRAVENOUS DRIP QD
     Route: 041
     Dates: start: 20211209, end: 20211212
  6. ETOPOSIDE [Suspect]
     Active Substance: ETOPOSIDE
     Dosage: 6TH CYCLE,, 0.9% NS INJECTION 250ML + ETOPOSIDE INJECTION 60MG INTRAVENOUS DRIP QD
     Route: 041
     Dates: start: 20211209, end: 20211212

REACTIONS (2)
  - White blood cell count decreased [Unknown]
  - Neutrophil count decreased [Unknown]

NARRATIVE: CASE EVENT DATE: 20211212
